FAERS Safety Report 6172996-1 (Version None)
Quarter: 2009Q2

REPORT INFORMATION
  Report Type: 
  Country: None (occurrence: None)
  Receive Date: 20090430
  Receipt Date: 20090420
  Transmission Date: 20091009
  Serious: Yes (Hospitalization, Other)
  Sender: FDA-Public Use
  Company Number: IR-TYCO HEALTHCARE/MALLINCKRODT-T200900904

PATIENT
  Age: 19 Year
  Sex: Male

DRUGS (2)
  1. TRAMADOL HCL [Suspect]
     Dosage: 100 MG, BID
  2. TRAMADOL HCL [Suspect]
     Dosage: 4000 MG, SINGLE
     Route: 048

REACTIONS (9)
  - BLOOD CREATINE PHOSPHOKINASE INCREASED [None]
  - BLOOD CREATININE INCREASED [None]
  - BLOOD LACTATE DEHYDROGENASE INCREASED [None]
  - CONFUSIONAL STATE [None]
  - CONVULSION [None]
  - DRUG ABUSE [None]
  - MIOSIS [None]
  - OVERDOSE [None]
  - SUICIDE ATTEMPT [None]
